FAERS Safety Report 5226086-2 (Version None)
Quarter: 2007Q1

REPORT INFORMATION
  Report Type: 
  Country: None (occurrence: None)
  Receive Date: 20070201
  Receipt Date: 20070131
  Transmission Date: 20070707
  Serious: Yes (Hospitalization)
  Sender: FDA-Public Use
  Company Number: IT-BRISTOL-MYERS SQUIBB COMPANY-13575832

PATIENT
  Age: 37 Year
  Sex: Female

DRUGS (5)
  1. CYCLOPHOSPHAMIDE [Suspect]
     Indication: NEOPLASM MALIGNANT
     Route: 042
     Dates: start: 20061102
  2. METHOTREXATE [Suspect]
     Indication: NEOPLASM MALIGNANT
     Route: 042
     Dates: start: 20061102
  3. EXEMESTANE [Suspect]
     Indication: NEOPLASM MALIGNANT
     Dates: start: 20060520
  4. FLUOROURACIL [Suspect]
     Indication: NEOPLASM MALIGNANT
     Route: 042
     Dates: start: 20061102
  5. TRIPTORELIN [Concomitant]
     Route: 030
     Dates: start: 20060521

REACTIONS (2)
  - PANCYTOPENIA [None]
  - PROCTITIS [None]
